FAERS Safety Report 6124639-0 (Version None)
Quarter: 2009Q1

REPORT INFORMATION
  Report Type: 
  Country: None (occurrence: None)
  Receive Date: 20090319
  Receipt Date: 20090312
  Transmission Date: 20090719
  Serious: Yes (Hospitalization)
  Sender: FDA-Public Use
  Company Number: B0564621A

PATIENT
  Age: 15 Year
  Sex: Female

DRUGS (1)
  1. MALARONE [Suspect]
     Indication: MALARIA PROPHYLAXIS
     Route: 048
     Dates: start: 20081015, end: 20081109

REACTIONS (4)
  - AGGRESSION [None]
  - DELUSION [None]
  - HYPOMANIA [None]
  - PSYCHOMOTOR HYPERACTIVITY [None]
